APPROVED DRUG PRODUCT: PREDAIR
Active Ingredient: PREDNISOLONE SODIUM PHOSPHATE
Strength: EQ 0.11% PHOSPHATE
Dosage Form/Route: SOLUTION/DROPS;OPHTHALMIC
Application: A088415 | Product #001
Applicant: PHARMAFAIR INC
Approved: Feb 29, 1984 | RLD: No | RS: No | Type: DISCN